FAERS Safety Report 17338346 (Version 1)
Quarter: 2020Q1

REPORT INFORMATION
  Report Type: Spontaneous
  Country: US (occurrence: US)
  Receive Date: 20200129
  Receipt Date: 20200129
  Transmission Date: 20200409
  Serious: Yes (Other)
  Sender: FDA-Public Use
  Company Number: US-ELI_LILLY_AND_COMPANY-US202001008389

PATIENT
  Age: 74 Year
  Sex: Female

DRUGS (13)
  1. HUMALOG [Suspect]
     Active Substance: INSULIN LISPRO
     Dosage: 4-6 U, PRN (NIGHT)
     Route: 058
     Dates: start: 1993
  2. HUMALOG [Suspect]
     Active Substance: INSULIN LISPRO
     Dosage: 60 U, DAILY (DINNER)
     Route: 058
     Dates: start: 1993
  3. HUMALOG [Suspect]
     Active Substance: INSULIN LISPRO
     Dosage: 45 U, EACH MORNING
     Route: 058
  4. METFORMIN [Concomitant]
     Active Substance: METFORMIN HYDROCHLORIDE
     Indication: PRODUCT USED FOR UNKNOWN INDICATION
     Dosage: UNK
     Dates: start: 1984
  5. HUMULIN N [Suspect]
     Active Substance: INSULIN HUMAN
     Indication: TYPE 2 DIABETES MELLITUS
     Dosage: 25 U, BID (MORNING AND BEDTIME)
     Route: 058
     Dates: start: 1993
  6. HUMULIN N [Suspect]
     Active Substance: INSULIN HUMAN
     Indication: TYPE 2 DIABETES MELLITUS
     Dosage: 25 U, BID (MORNING AND BEDTIME)
     Route: 058
     Dates: start: 1993
  7. HUMALOG [Suspect]
     Active Substance: INSULIN LISPRO
     Indication: TYPE 2 DIABETES MELLITUS
     Dosage: 45 U, EACH MORNING
     Route: 058
     Dates: start: 1993
  8. HUMALOG [Suspect]
     Active Substance: INSULIN LISPRO
     Dosage: 60 U, DAILY (LUNCH)
     Route: 058
     Dates: start: 1993
  9. HUMALOG [Suspect]
     Active Substance: INSULIN LISPRO
     Dosage: 4-6 U, PRN (NIGHT)
     Route: 058
  10. LANTUS [Concomitant]
     Active Substance: INSULIN GLARGINE
     Indication: PRODUCT USED FOR UNKNOWN INDICATION
  11. JARDIANCE [Concomitant]
     Active Substance: EMPAGLIFLOZIN
     Indication: PRODUCT USED FOR UNKNOWN INDICATION
  12. HUMALOG [Suspect]
     Active Substance: INSULIN LISPRO
     Dosage: 60 U, DAILY (LUNCH)
     Route: 058
  13. HUMALOG [Suspect]
     Active Substance: INSULIN LISPRO
     Dosage: 60 U, DAILY (DINNER)
     Route: 058

REACTIONS (3)
  - Parkinsonism [Unknown]
  - Blood glucose abnormal [Unknown]
  - Cough [Unknown]
